FAERS Safety Report 9495122 (Version 1)
Quarter: 2013Q3

REPORT INFORMATION
  Report Type: Spontaneous
  Country: US (occurrence: US)
  Receive Date: 20130903
  Receipt Date: 20130903
  Transmission Date: 20140515
  Serious: Yes (Hospitalization, Other)
  Sender: FDA-Public Use
  Company Number: US-SANOFI-AVENTIS-2013SA086668

PATIENT
  Age: 59 Year
  Sex: Male

DRUGS (3)
  1. LANTUS SOLOSTAR [Suspect]
     Indication: TYPE 2 DIABETES MELLITUS
     Dosage: 180 UNITS AT NIGHT AND 180 UNITS AT MORNING DOSE:180 UNIT(S)
     Route: 051
  2. NOVOLOG [Concomitant]
     Dosage: DOSE:60 UNIT(S)
     Route: 065
  3. METFORMIN [Concomitant]
     Route: 065

REACTIONS (12)
  - Loss of consciousness [Unknown]
  - Dehydration [Unknown]
  - Blood glucose increased [Unknown]
  - Face injury [Unknown]
  - Pericardial effusion [Unknown]
  - Adrenal neoplasm [Unknown]
  - Blood pressure abnormal [Unknown]
  - Arthropathy [Unknown]
  - Hypotension [Unknown]
  - Dizziness [Unknown]
  - Glycosylated haemoglobin increased [Unknown]
  - Blood glucose increased [Unknown]
